FAERS Safety Report 11152103 (Version 1)
Quarter: 2015Q2

REPORT INFORMATION
  Report Type: Spontaneous
  Country: US (occurrence: None)
  Receive Date: 20150529
  Receipt Date: 20150529
  Transmission Date: 20150821
  Serious: Yes (Life-Threatening)
  Sender: FDA-Public Use
  Company Number: None

PATIENT
  Age: 66 Year
  Sex: Male
  Weight: 52.7 kg

DRUGS (1)
  1. EPINEPHRINE/LIDOCAINE [Suspect]
     Active Substance: EPINEPHRINE\LIDOCAINE
     Dates: start: 20150413, end: 20150413

REACTIONS (1)
  - Respiratory distress [None]

NARRATIVE: CASE EVENT DATE: 20150413
